FAERS Safety Report 8207552-4 (Version None)
Quarter: 2012Q1

REPORT INFORMATION
  Report Type: 
  Country: None (occurrence: None)
  Receive Date: 20120313
  Receipt Date: 20120313
  Transmission Date: 20120608
  Serious: Yes (Life-Threatening, Hospitalization)
  Sender: FDA-Public Use
  Company Number: None

PATIENT
  Sex: Female
  Weight: 68.27 kg

DRUGS (2)
  1. RIBAVIRIN [Suspect]
     Indication: HEPATITIS C
     Dosage: 1000MG DAILY PO
     Route: 048
     Dates: start: 20111001
  2. PEGASYS [Suspect]
     Dosage: 180 MCG WEEKLY SQ
     Route: 058

REACTIONS (2)
  - SUICIDAL IDEATION [None]
  - CARDIAC DISORDER [None]
